FAERS Safety Report 15974159 (Version 1)
Quarter: 2019Q1

REPORT INFORMATION
  Report Type: Spontaneous
  Country: US (occurrence: US)
  Receive Date: 20190218
  Receipt Date: 20190218
  Transmission Date: 20190418
  Serious: No
  Sender: FDA-Public Use
  Company Number: US-ZYDUS-032989

PATIENT
  Age: 62 Year
  Sex: Female

DRUGS (2)
  1. LORAZEPAM. [Concomitant]
     Active Substance: LORAZEPAM
     Indication: ANXIETY
     Route: 065
  2. METHYLPREDNISOLONE. [Suspect]
     Active Substance: METHYLPREDNISOLONE
     Indication: HYPERSENSITIVITY
     Dosage: AS DIRECTED
     Route: 048
     Dates: start: 20190108, end: 20190110

REACTIONS (7)
  - Poor quality sleep [Not Recovered/Not Resolved]
  - Palpitations [Recovered/Resolved]
  - Malaise [Not Recovered/Not Resolved]
  - Intentional dose omission [Recovered/Resolved]
  - Abdominal pain upper [Not Recovered/Not Resolved]
  - Lip swelling [Not Recovered/Not Resolved]
  - Intentional product misuse [Recovered/Resolved]

NARRATIVE: CASE EVENT DATE: 20190109
